FAERS Safety Report 5274431-4 (Version None)
Quarter: 2007Q1

REPORT INFORMATION
  Report Type: 
  Country: None (occurrence: None)
  Receive Date: 20070323
  Receipt Date: 20070312
  Transmission Date: 20070707
  Serious: Yes (Other)
  Sender: FDA-Public Use
  Company Number: US-PFIZER INC-2007019128

PATIENT
  Sex: Female
  Weight: 60 kg

DRUGS (13)
  1. DILANTIN [Suspect]
     Indication: CONVULSION
  2. LIPITOR [Concomitant]
  3. CALCITRIOL [Concomitant]
  4. COLACE [Concomitant]
  5. BISACODYL [Concomitant]
  6. VITAMIN K [Concomitant]
  7. PREVACID [Concomitant]
  8. CEFEPIME [Concomitant]
  9. INSULIN [Concomitant]
  10. VANCOMYCIN [Concomitant]
  11. MORPHINE [Concomitant]
  12. VERSED [Concomitant]
  13. LEVOPHED [Concomitant]

REACTIONS (4)
  - ANTICONVULSANT DRUG LEVEL ABOVE THERAPEUTIC [None]
  - CONVULSION [None]
  - HAEMODIALYSIS [None]
  - MENTAL IMPAIRMENT [None]
